FAERS Safety Report 8221382-9 (Version None)
Quarter: 2012Q1

REPORT INFORMATION
  Report Type: 
  Country: None (occurrence: None)
  Receive Date: 20120320
  Receipt Date: 20120317
  Transmission Date: 20120608
  Serious: Yes (Death)
  Sender: FDA-Public Use
  Company Number: PHHY2012GT023768

PATIENT

DRUGS (2)
  1. DIOVAN HCT [Suspect]
     Dosage: VALSARTAN 160MG AND HYDROCHLOROTHIAZIDE 12.5MG
     Route: 048
  2. EXELON [Suspect]
     Dosage: 4.6 MG PER DAY
     Route: 062

REACTIONS (1)
  - DEATH [None]
